FAERS Safety Report 6925238-0 (Version None)
Quarter: 2010Q3

REPORT INFORMATION
  Report Type: 
  Country: None (occurrence: None)
  Receive Date: 20100816
  Receipt Date: 20100812
  Transmission Date: 20110219
  Serious: Yes (Other)
  Sender: FDA-Public Use
  Company Number: US-BAYER-201030409NA

PATIENT
  Age: 69 Year
  Sex: Male

DRUGS (1)
  1. LEVITRA [Suspect]
     Indication: ERECTILE DYSFUNCTION
     Dosage: 1-2 TIMES PER WEEK
     Route: 048

REACTIONS (3)
  - DEAFNESS [None]
  - HYPOAESTHESIA [None]
  - PARAESTHESIA [None]
